FAERS Safety Report 4503839-7 (Version None)
Quarter: 2004Q4

REPORT INFORMATION
  Report Type: 
  Country: None (occurrence: None)
  Receive Date: 20041117
  Receipt Date: 20041109
  Transmission Date: 20050328
  Serious: Yes (Other)
  Sender: FDA-Public Use
  Company Number: US-MERCK-0411USA01749

PATIENT
  Age: 56 Year
  Sex: Female

DRUGS (7)
  1. VIOXX [Suspect]
     Indication: PAIN
     Route: 048
     Dates: start: 19980101, end: 20040501
  2. VIOXX [Suspect]
     Route: 048
     Dates: start: 19980101, end: 20040501
  3. VIOXX [Suspect]
     Route: 048
     Dates: start: 19980101, end: 20040501
  4. CALCIUM (UNSPECIFIED) [Concomitant]
     Route: 065
  5. DIMETHYL SULFONE [Concomitant]
     Route: 065
  6. CHONDROITIN [Concomitant]
     Route: 065
  7. ESTROGENS (UNSPECIFIED) [Concomitant]
     Route: 065
     Dates: end: 20040801

REACTIONS (3)
  - ARTHROPATHY [None]
  - CEREBROVASCULAR ACCIDENT [None]
  - OVERDOSE [None]
